FAERS Safety Report 6206615-2 (Version None)
Quarter: 2009Q2

REPORT INFORMATION
  Report Type: 
  Country: None (occurrence: None)
  Receive Date: 20090528
  Receipt Date: 20080428
  Transmission Date: 20091009
  Serious: Yes (Hospitalization, Other)
  Sender: FDA-Public Use
  Company Number: US-ASTRAZENECA-2007UW05484

PATIENT
  Age: 19193 Day
  Sex: Female
  Weight: 78 kg

DRUGS (8)
  1. SEROQUEL [Suspect]
     Indication: DEPRESSION
     Dosage: 25-200 MG
     Route: 048
     Dates: start: 20011221, end: 20020620
  2. AMBIEN [Concomitant]
     Indication: INSOMNIA
  3. PREMARIN [Concomitant]
  4. WELLBUTRIN [Concomitant]
  5. DIPHENHYDRAMINE HCL [Concomitant]
  6. CELEBREX [Concomitant]
     Route: 048
  7. GLUCOPHAGE [Concomitant]
  8. NEURONTIN [Concomitant]

REACTIONS (4)
  - DIABETES MELLITUS [None]
  - DIABETIC NEUROPATHY [None]
  - NEUROPATHY PERIPHERAL [None]
  - TYPE 2 DIABETES MELLITUS [None]
